FAERS Safety Report 13145208 (Version 1)
Quarter: 2017Q1

REPORT INFORMATION
  Report Type: Spontaneous
  Country: GB (occurrence: GB)
  Receive Date: 20170124
  Receipt Date: 20170124
  Transmission Date: 20170428
  Serious: Yes (Hospitalization, Other)
  Sender: FDA-Public Use
  Company Number: GB-APOTEX-2017AP005995

PATIENT
  Age: 47 Year
  Sex: Male

DRUGS (4)
  1. ZOPICLONE TABLETS [Suspect]
     Active Substance: ZOPICLONE
     Indication: PRODUCT USED FOR UNKNOWN INDICATION
     Dosage: 735 MG, SINGLE DOSE
     Route: 065
  2. OLANZAPINE APOTEX [Suspect]
     Active Substance: OLANZAPINE
     Indication: PRODUCT USED FOR UNKNOWN INDICATION
     Dosage: 1.16 G, SINGLE DOSE
     Route: 065
  3. VENAXX XL PROLONGED-RELEASE CAPSULES [Suspect]
     Active Substance: VENLAFAXINE HYDROCHLORIDE
     Indication: PRODUCT USED FOR UNKNOWN INDICATION
     Dosage: 11.7 G, SINGLE DOSE
     Route: 065
  4. DIAZEPAM. [Suspect]
     Active Substance: DIAZEPAM
     Indication: PRODUCT USED FOR UNKNOWN INDICATION
     Dosage: 420 MG, SINGLE DOSE
     Route: 065

REACTIONS (11)
  - Hyperkalaemia [Unknown]
  - Multiple organ dysfunction syndrome [Unknown]
  - Acute kidney injury [Unknown]
  - Gastrointestinal motility disorder [Recovered/Resolved]
  - Overdose [Unknown]
  - Loss of consciousness [Unknown]
  - Drug interaction [Unknown]
  - Electrocardiogram QT prolonged [Unknown]
  - Hypotension [Unknown]
  - Acidosis [Unknown]
  - Tachycardia [Unknown]
